FAERS Safety Report 5942558-7 (Version None)
Quarter: 2008Q4

REPORT INFORMATION
  Report Type: 
  Country: None (occurrence: None)
  Receive Date: 20081105
  Receipt Date: 20081024
  Transmission Date: 20090506
  Serious: Yes (Other)
  Sender: FDA-Public Use
  Company Number: CN-PFIZER INC-2008091072

PATIENT
  Age: 28 Year
  Sex: Female

DRUGS (2)
  1. CEFOPERAZONE SODIUM [Suspect]
     Indication: PNEUMONIA
     Route: 042
     Dates: start: 19920103, end: 19920110
  2. CEFOPERAZONE SODIUM [Suspect]
     Indication: SEPSIS

REACTIONS (1)
  - PSYCHOTIC DISORDER [None]
